FAERS Safety Report 18152742 (Version 1)
Quarter: 2020Q3

REPORT INFORMATION
  Report Type: Spontaneous
  Country: JP (occurrence: JP)
  Receive Date: 20200814
  Receipt Date: 20200814
  Transmission Date: 20201103
  Serious: Yes (Life-Threatening, Hospitalization)
  Sender: FDA-Public Use
  Company Number: JP-JNJFOC-20200815701

PATIENT
  Sex: Female

DRUGS (7)
  1. YAZ [Suspect]
     Active Substance: DROSPIRENONE\ETHINYL ESTRADIOL
     Indication: PREMENSTRUAL SYNDROME
  2. KAMISHOYOSAN [ANGELICA ACUTILOBA ROOT;ATRACTYLODES LANCEA RHIZOME; [Concomitant]
     Indication: PREMENSTRUAL SYNDROME
     Dosage: DAILY DOSE 9.5 MG
  3. XARELTO [Suspect]
     Active Substance: RIVAROXABAN
     Indication: DEEP VEIN THROMBOSIS
     Dosage: 15MG
     Route: 048
     Dates: start: 20200529
  4. TANDOSPIRONE CITRATE [Concomitant]
     Active Substance: TANDOSPIRONE CITRATE
     Indication: SCHIZOPHRENIA
     Dosage: DAILY DOSE 60 MG
  5. OLANZAPINE OD [Concomitant]
     Active Substance: OLANZAPINE
     Indication: SCHIZOPHRENIA
     Dosage: DAILY DOSE 20 MG
  6. BELSOMRA [Concomitant]
     Active Substance: SUVOREXANT
     Indication: SCHIZOPHRENIA
     Dosage: DAILY DOSE 20 MG
  7. YAZ [Suspect]
     Active Substance: DROSPIRENONE\ETHINYL ESTRADIOL
     Indication: DYSMENORRHOEA
     Dosage: UNK
     Route: 048
     Dates: start: 20200414, end: 20200602

REACTIONS (2)
  - Deep vein thrombosis [Recovered/Resolved]
  - Incorrect dose administered [Unknown]

NARRATIVE: CASE EVENT DATE: 20200529
